FAERS Safety Report 5122729-2 (Version None)
Quarter: 2006Q4

REPORT INFORMATION
  Report Type: 
  Country: None (occurrence: None)
  Receive Date: 20061004
  Receipt Date: 20060919
  Transmission Date: 20070319
  Serious: Yes (Other)
  Sender: FDA-Public Use
  Company Number: S06-FRA-03944-01

PATIENT
  Age: 70 Year
  Sex: Female

DRUGS (4)
  1. SEROPLEX (ESCITALOPRAM) [Suspect]
     Indication: MAJOR DEPRESSION
     Dosage: 5 MG QD PO
     Route: 048
     Dates: start: 20060918
  2. SEROPLEX (ESCITALOPRAM) [Suspect]
     Indication: SOCIAL PHOBIA
     Dosage: 5 MG QD PO
     Route: 048
     Dates: start: 20060918
  3. LEXOMIL (BROMAZEPAM) [Concomitant]
  4. DISOPYRAMIDE [Concomitant]

REACTIONS (2)
  - COUGH [None]
  - EXTRASYSTOLES [None]
